FAERS Safety Report 9098148 (Version 1)
Quarter: 2013Q1

REPORT INFORMATION
  Report Type: Spontaneous
  Country: US (occurrence: US)
  Receive Date: 20130213
  Receipt Date: 20130213
  Transmission Date: 20140127
  Serious: Yes (Death)
  Sender: FDA-Public Use
  Company Number: PHEH2013US003496

PATIENT
  Age: 54 Year
  Sex: Male

DRUGS (12)
  1. AFINITOR [Suspect]
     Dosage: 10 MG, QD
     Route: 048
  2. SUTENT [Concomitant]
     Dosage: 12.5 MG, UNK
  3. GLUCOPHAGE [Concomitant]
     Dosage: 1000 MG, UNK
  4. CELEXA [Concomitant]
     Dosage: 10 MG
     Route: 048
  5. OMEPRAZOLE [Concomitant]
     Dosage: 20 MG
     Route: 048
  6. SANDOSTATIN [Concomitant]
     Dosage: 100 UG, UNK
  7. VIT B1 [Concomitant]
     Dosage: 100 MG
     Route: 048
  8. MULTI-VIT [Concomitant]
     Route: 048
  9. CAL [Concomitant]
     Dosage: 500 MG, UNK
     Route: 048
  10. LEVOTHYROXIN [Concomitant]
     Dosage: 150 UG, UNK
  11. MECLIZINE [Concomitant]
     Dosage: 12.5 MG
  12. SCOPOLAMINE [Concomitant]
     Dosage: 0.4 MG/ML

REACTIONS (1)
  - Death [Fatal]
